FAERS Safety Report 4664715-2 (Version None)
Quarter: 2005Q2

REPORT INFORMATION
  Report Type: 
  Country: None (occurrence: None)
  Receive Date: 20050516
  Receipt Date: 20050511
  Transmission Date: 20051028
  Serious: Yes (Death, Hospitalization)
  Sender: FDA-Public Use
  Company Number: THQ2005A00414

PATIENT
  Age: 75 Year
  Sex: Female

DRUGS (14)
  1. LANSOPRAZOLE [Suspect]
     Indication: DUODENAL ULCER
     Dates: start: 20020301
  2. CO-CODAMOL (PANADEINE CO) [Suspect]
     Indication: RHEUMATOID ARTHRITIS
     Dates: start: 20020301
  3. DILTIAZEM HYDROCHLORIDE [Suspect]
     Indication: HYPERTENSION
     Dates: start: 20020301
  4. ASPIRIN [Suspect]
     Indication: PAIN
     Dates: start: 20020301
  5. BUDESONIDE [Suspect]
     Indication: ASTHMA
     Dosage: 91 IN 1 D)
     Dates: start: 20020301
  6. ARAVA [Suspect]
     Indication: RHEUMATOID ARTHRITIS
     Dosage: 1 IN 1 D
     Dates: start: 20020301
  7. LISINOPRIL [Suspect]
     Dates: start: 20020301
  8. NITROGLYCERIN [Suspect]
     Indication: PAIN
     Dosage: PER ORAL
     Route: 048
     Dates: start: 20020301
  9. ATORVASTATIN CALCIUM [Suspect]
     Indication: HYPERCHOLESTEROLAEMIA
     Dates: start: 19990101
  10. QUININE SULFATE [Suspect]
     Indication: MUSCLE SPASMS
  11. PROPOFOL [Suspect]
     Indication: ANAESTHESIA
     Dosage: INTRAVENOUS DRIP
     Route: 041
     Dates: start: 20020301, end: 20020301
  12. MIDAZOLAM [Suspect]
     Indication: ANAESTHESIA
     Dosage: INTRAVENOUS DRIP
     Route: 041
     Dates: start: 20020301, end: 20020301
  13. FENTANYL [Suspect]
     Indication: ANAESTHESIA
     Dosage: INTRAVENOUS DRIP
     Route: 041
     Dates: start: 20020301, end: 20020301
  14. PANCURONIUM [Suspect]
     Indication: MUSCLE RELAXANT THERAPY
     Dates: start: 20020301, end: 20020301

REACTIONS (14)
  - ACTIVATED PARTIAL THROMBOPLASTIN TIME PROLONGED [None]
  - CENTRAL VENOUS PRESSURE ABNORMAL [None]
  - COAGULOPATHY [None]
  - GASTRIC ULCER [None]
  - GASTROINTESTINAL HAEMORRHAGE [None]
  - HAEMATEMESIS [None]
  - HEPATIC FAILURE [None]
  - HEPATIC INFARCTION [None]
  - HEPATOCELLULAR DAMAGE [None]
  - HEPATORENAL SYNDROME [None]
  - HYPOVOLAEMIA [None]
  - LABILE BLOOD PRESSURE [None]
  - PROTHROMBIN TIME PROLONGED [None]
  - RENAL FAILURE [None]
